FAERS Safety Report 23949957 (Version 1)
Quarter: 2024Q2

REPORT INFORMATION
  Report Type: Spontaneous
  Country: US (occurrence: None)
  Receive Date: 20240606
  Receipt Date: 20240606
  Transmission Date: 20240716
  Serious: Yes (Hospitalization)
  Sender: FDA-Public Use
  Company Number: None

PATIENT
  Age: 76 Year
  Sex: Male

DRUGS (30)
  1. IMATINIB MESYLATE [Suspect]
     Active Substance: IMATINIB MESYLATE
     Dosage: FREQUENCY : DAILY;?
     Dates: start: 20231012
  2. NIFEDIOINE [Concomitant]
  3. SILDENAFIL [Concomitant]
  4. DOCUSATE SOD [Concomitant]
  5. ONDANSETRON [Concomitant]
  6. BUMETANIDE [Concomitant]
     Active Substance: BUMETANIDE
  7. HYDRALAZINE [Concomitant]
  8. ALBUTEROL [Concomitant]
  9. PROVENTIL HFA IN W/DOS CTR [Concomitant]
  10. AMLODIPINE BESYLATE [Concomitant]
     Active Substance: AMLODIPINE BESYLATE
  11. ASPIRIN [Concomitant]
  12. ATORVASTATIN [Concomitant]
  13. CALCIUM [Concomitant]
  14. DORZOLAMIDE [Concomitant]
  15. ENALAPRIL [Concomitant]
  16. ENSURE CHOCOLATE LIQID [Concomitant]
  17. VITAMIN D2 [Concomitant]
     Active Substance: ERGOCALCIFEROL
  18. FAMOTIDINE [Concomitant]
  19. FERROUS SULFATE [Concomitant]
     Active Substance: FERROUS SULFATE
  20. GABAPENTIN [Concomitant]
  21. METFORMIN [Concomitant]
  22. OXYBUTYNIN [Concomitant]
  23. PANTOPRAZOLE [Concomitant]
  24. MIRALAX [Concomitant]
  25. METAMUCO; [Concomitant]
  26. XARELTO [Concomitant]
  27. JANUVIA [Concomitant]
  28. ANORO ELLIPTA [Concomitant]
     Active Substance: UMECLIDINIUM BROMIDE\VILANTEROL TRIFENATATE
  29. VITAMIN B12 [Concomitant]
     Active Substance: CYANOCOBALAMIN
  30. COLD + FLU NIGHT TIME LIQUID [Concomitant]

REACTIONS (2)
  - Drug ineffective [None]
  - Therapy interrupted [None]

NARRATIVE: CASE EVENT DATE: 20240501
